FAERS Safety Report 4325721-0 (Version None)
Quarter: 2004Q1

REPORT INFORMATION
  Report Type: 
  Country: None (occurrence: None)
  Receive Date: 20040324
  Receipt Date: 20040304
  Transmission Date: 20041129
  Serious: Yes (Hospitalization)
  Sender: FDA-Public Use
  Company Number: USA040361054

PATIENT
  Age: 21 Year
  Sex: Male

DRUGS (1)
  1. STRATTERA [Suspect]
     Dates: start: 20031001

REACTIONS (3)
  - HALLUCINATION [None]
  - OVERDOSE [None]
  - SELF-MEDICATION [None]
